FAERS Safety Report 16847256 (Version 2)
Quarter: 2019Q4

REPORT INFORMATION
  Report Type: Report from Study
  Country: BR (occurrence: BR)
  Receive Date: 20190924
  Receipt Date: 20191217
  Transmission Date: 20200122
  Serious: Yes (Life-Threatening, Disabling)
  Sender: FDA-Public Use
  Company Number: PHHY2019BR221222

PATIENT
  Age: 95 Year
  Sex: Female

DRUGS (1)
  1. EXELON PATCH [Suspect]
     Active Substance: RIVASTIGMINE
     Indication: FEELING ABNORMAL
     Dosage: FOUR OR FIVE YEARS AGO
     Route: 062

REACTIONS (8)
  - Oxygen saturation decreased [Recovering/Resolving]
  - Gait disturbance [Not Recovered/Not Resolved]
  - Eye disorder [Recovering/Resolving]
  - Cardiac disorder [Unknown]
  - Mobility decreased [Recovering/Resolving]
  - Memory impairment [Recovering/Resolving]
  - Product use in unapproved indication [Unknown]
  - Somnolence [Recovering/Resolving]

NARRATIVE: CASE EVENT DATE: 20191207
